FAERS Safety Report 11611112 (Version 1)
Quarter: 2015Q4

REPORT INFORMATION
  Report Type: Spontaneous
  Country: US (occurrence: None)
  Receive Date: 20151007
  Receipt Date: 20151007
  Transmission Date: 20160304
  Serious: Yes (Hospitalization)
  Sender: FDA-Public Use
  Company Number: None

PATIENT
  Age: 87 Year
  Sex: Male
  Weight: 63 kg

DRUGS (2)
  1. TRAZODONE [Suspect]
     Active Substance: TRAZODONE HYDROCHLORIDE
     Indication: BIPOLAR I DISORDER
     Route: 048
     Dates: start: 20150224, end: 20150401
  2. VALPROIC ACID. [Suspect]
     Active Substance: VALPROIC ACID
     Indication: BIPOLAR I DISORDER
     Route: 048
     Dates: start: 20150204, end: 20150331

REACTIONS (5)
  - Lethargy [None]
  - Hypotension [None]
  - Hyponatraemia [None]
  - Sedation [None]
  - Depressed level of consciousness [None]

NARRATIVE: CASE EVENT DATE: 20150402
